FAERS Safety Report 9015991 (Version 1)
Quarter: 2013Q1

REPORT INFORMATION
  Report Type: Spontaneous
  Country: FR (occurrence: FR)
  Receive Date: 20130116
  Receipt Date: 20130116
  Transmission Date: 20140127
  Serious: Yes (Other)
  Sender: FDA-Public Use
  Company Number: FR-AMGEN-FRASP2013002990

PATIENT
  Sex: Male

DRUGS (2)
  1. ENBREL [Suspect]
     Indication: PSORIASIS
     Dosage: UNK
     Dates: end: 201204
  2. CELLCEPT                           /01275102/ [Concomitant]
     Dosage: UNK

REACTIONS (2)
  - Renal disorder [Unknown]
  - Psoriasis [Not Recovered/Not Resolved]
